FAERS Safety Report 5500904-2 (Version None)
Quarter: 2007Q4

REPORT INFORMATION
  Report Type: 
  Country: None (occurrence: None)
  Receive Date: 20071029
  Receipt Date: 20071019
  Transmission Date: 20080405
  Serious: Yes (Hospitalization)
  Sender: FDA-Public Use
  Company Number: US-SANOFI-SYNTHELABO-F03200700195

PATIENT
  Age: 39 Year
  Sex: Female
  Weight: 82.5 kg

DRUGS (2)
  1. OXALIPLATIN [Suspect]
     Indication: NEOPLASM MALIGNANT
     Route: 033
     Dates: start: 20070918, end: 20070918
  2. OXALIPLATIN [Suspect]
     Indication: PERITONEAL CARCINOMA
     Route: 033
     Dates: start: 20070918, end: 20070918

REACTIONS (5)
  - ABDOMINAL PAIN [None]
  - PLEURAL EFFUSION [None]
  - SINUS TACHYCARDIA [None]
  - WOUND DEHISCENCE [None]
  - WOUND INFECTION [None]
